FAERS Safety Report 7164586-9 (Version None)
Quarter: 2010Q4

REPORT INFORMATION
  Report Type: 
  Country: None (occurrence: None)
  Receive Date: 20101215
  Receipt Date: 20101207
  Transmission Date: 20110411
  Serious: Yes (Hospitalization, Other)
  Sender: FDA-Public Use
  Company Number: JP-CEPHALON-2010006080

PATIENT
  Sex: Female

DRUGS (22)
  1. TREANDA [Suspect]
     Indication: DIFFUSE LARGE B-CELL LYMPHOMA REFRACTORY
     Route: 042
     Dates: start: 20100914, end: 20101027
  2. TREANDA [Suspect]
     Route: 042
     Dates: start: 20101130, end: 20101201
  3. RITUXIMAB [Suspect]
     Indication: DIFFUSE LARGE B-CELL LYMPHOMA REFRACTORY
     Route: 041
     Dates: start: 20100913, end: 20101025
  4. RITUXIMAB [Suspect]
     Route: 041
     Dates: start: 20101129, end: 20101129
  5. NISSEKI POLYGLOBIN [Concomitant]
  6. FAROPENEM [Concomitant]
     Dates: start: 20101109
  7. BIFIDOBACTERIUM BIFIDUM [Concomitant]
  8. SODIUM GUALENATE [Concomitant]
     Dates: start: 20101108
  9. SULFAMETHOXAZOLE AND TRIMETHOPRIM [Concomitant]
     Dates: start: 20100914
  10. ACYCLOVIR [Concomitant]
     Dates: start: 20100914
  11. ZOLPIDEM [Concomitant]
  12. RABEPRAZOLE SODIUM [Concomitant]
     Dates: start: 20101004
  13. MOSAPRIDE CITRATE [Concomitant]
     Dates: start: 20101109
  14. FILGRASTIM [Concomitant]
     Dates: start: 20101108, end: 20101109
  15. AZULENE [Concomitant]
     Dates: start: 20101104
  16. SULPERAZON [Concomitant]
     Dates: start: 20101110, end: 20101112
  17. MEROPENEM [Concomitant]
     Dates: start: 20101113, end: 20101114
  18. MICAFUNGIN SODIUM [Concomitant]
     Dates: start: 20101113, end: 20101128
  19. GAMIMUNE N 5% [Concomitant]
     Dates: start: 20101113, end: 20101115
  20. ALUMINUM HYDROXIDE [Concomitant]
     Dates: start: 20101025
  21. MAGNESIUM OXIDE [Concomitant]
     Dates: start: 20100915
  22. SODIUM ALGINATE [Concomitant]
     Dates: start: 20101104

REACTIONS (5)
  - CYTOMEGALOVIRUS INFECTION [None]
  - DECREASED APPETITE [None]
  - DIARRHOEA [None]
  - STOMATITIS [None]
  - WHITE BLOOD CELL COUNT DECREASED [None]
